FAERS Safety Report 9789895 (Version 1)
Quarter: 2013Q4

REPORT INFORMATION
  Report Type: Spontaneous
  Country: US (occurrence: US)
  Receive Date: 20131231
  Receipt Date: 20131231
  Transmission Date: 20140711
  Serious: Yes (Other)
  Sender: FDA-Public Use
  Company Number: US-JNJFOC-20131214880

PATIENT
  Age: 79 Year
  Sex: Female
  Weight: 47.63 kg

DRUGS (5)
  1. XARELTO [Suspect]
     Indication: THROMBOSIS PROPHYLAXIS
     Route: 048
     Dates: start: 20131016, end: 20131212
  2. XARELTO [Suspect]
     Indication: THROMBOSIS PROPHYLAXIS
     Route: 048
     Dates: start: 2012
  3. XARELTO [Suspect]
     Indication: HIP ARTHROPLASTY
     Route: 048
     Dates: start: 20131016, end: 20131212
  4. XARELTO [Suspect]
     Indication: HIP ARTHROPLASTY
     Route: 048
     Dates: start: 2012
  5. ATENOLOL [Concomitant]
     Indication: BLOOD PRESSURE
     Route: 048
     Dates: start: 2003

REACTIONS (6)
  - Cerebrovascular accident [Unknown]
  - Adverse drug reaction [Unknown]
  - Rash macular [Not Recovered/Not Resolved]
  - Blister [Recovering/Resolving]
  - Skin exfoliation [Not Recovered/Not Resolved]
  - Pruritus [Not Recovered/Not Resolved]
